FAERS Safety Report 8361747 (Version 4)
Quarter: 2014Q1

REPORT INFORMATION
  Report Type: Report from Study
  Country: JP (occurrence: JP)
  Receive Date: 20120130
  Receipt Date: 20140213
  Transmission Date: 20141002
  Serious: Yes (Death, Hospitalization, Other)
  Sender: FDA-Public Use
  Company Number: JP-CELGENEUS-087-50794-12012229

PATIENT
  Age: 56 Year
  Sex: Male
  Weight: 90 kg

DRUGS (90)
  1. VIDAZA [Suspect]
     Indication: MYELODYSPLASTIC SYNDROME
     Dosage: 75 MILLIGRAM/SQ. METER
     Route: 041
     Dates: start: 20110517, end: 20110523
  2. VIDAZA [Suspect]
     Dosage: 75 MILLIGRAM/SQ. METER
     Route: 041
     Dates: start: 20110627, end: 20110703
  3. VIDAZA [Suspect]
     Dosage: 75 MILLIGRAM/SQ. METER
     Route: 041
     Dates: start: 20110725, end: 20110729
  4. VIDAZA [Suspect]
     Dosage: 75 MILLIGRAM/SQ. METER
     Route: 041
     Dates: start: 20110822, end: 20110826
  5. VIDAZA [Suspect]
     Dosage: 75 MILLIGRAM/SQ. METER
     Route: 041
     Dates: start: 20110926, end: 20110930
  6. VIDAZA [Suspect]
     Dosage: 75 MILLIGRAM/SQ. METER
     Route: 041
     Dates: start: 20111024, end: 20111028
  7. VIDAZA [Suspect]
     Dosage: 75 MILLIGRAM/SQ. METER
     Route: 041
     Dates: start: 20120604, end: 20120608
  8. VIDAZA [Suspect]
     Dosage: 75 MILLIGRAM/SQ. METER
     Route: 041
     Dates: start: 20120709, end: 20120713
  9. VIDAZA [Suspect]
     Dosage: 75 MILLIGRAM/SQ. METER
     Route: 041
     Dates: start: 20120903, end: 20120907
  10. VIDAZA [Suspect]
     Dosage: 75 MILLIGRAM/SQ. METER
     Route: 041
     Dates: start: 20121015, end: 20121019
  11. VIDAZA [Suspect]
     Dosage: 75 MILLIGRAM/SQ. METER
     Route: 041
     Dates: start: 20121112, end: 20121116
  12. ANCARON [Concomitant]
     Indication: PRODUCT USED FOR UNKNOWN INDICATION
     Route: 065
  13. ANCARON [Concomitant]
     Route: 065
     Dates: start: 20110724
  14. ZYLORIC [Concomitant]
     Indication: PRODUCT USED FOR UNKNOWN INDICATION
     Route: 065
  15. ZYLORIC [Concomitant]
     Route: 065
     Dates: end: 20111122
  16. TAKEPRON [Concomitant]
     Indication: PRODUCT USED FOR UNKNOWN INDICATION
     Route: 065
     Dates: end: 20121120
  17. LASIX [Concomitant]
     Indication: PRODUCT USED FOR UNKNOWN INDICATION
     Route: 065
     Dates: start: 20111114, end: 20111114
  18. LASIX [Concomitant]
     Route: 065
  19. LASIX [Concomitant]
     Route: 065
     Dates: start: 20111114, end: 20111114
  20. ARTIST [Concomitant]
     Indication: PRODUCT USED FOR UNKNOWN INDICATION
     Route: 065
     Dates: end: 20111114
  21. ARTIST [Concomitant]
     Route: 065
     Dates: start: 20111125
  22. ARTIST [Concomitant]
     Route: 065
     Dates: start: 20120502
  23. PIMOBENDAN [Concomitant]
     Indication: PRODUCT USED FOR UNKNOWN INDICATION
     Route: 065
  24. PIMOBENDAN [Concomitant]
     Route: 065
     Dates: start: 20120111
  25. RENIVACE [Concomitant]
     Indication: PRODUCT USED FOR UNKNOWN INDICATION
     Route: 065
     Dates: end: 20111122
  26. SELARA [Concomitant]
     Indication: PRODUCT USED FOR UNKNOWN INDICATION
     Route: 065
  27. SELARA [Concomitant]
     Route: 065
     Dates: start: 20120502
  28. MAGLAX [Concomitant]
     Indication: PRODUCT USED FOR UNKNOWN INDICATION
     Route: 065
     Dates: end: 20110615
  29. MAGLAX [Concomitant]
     Route: 065
     Dates: start: 20110727
  30. MAGLAX [Concomitant]
     Route: 065
     Dates: start: 20130130
  31. WARFARIN [Concomitant]
     Indication: PRODUCT USED FOR UNKNOWN INDICATION
     Route: 065
     Dates: end: 20110716
  32. WARFARIN [Concomitant]
     Route: 065
  33. WARFARIN [Concomitant]
     Route: 065
  34. DEPAS [Concomitant]
     Indication: PRODUCT USED FOR UNKNOWN INDICATION
     Route: 065
  35. GRAN [Concomitant]
     Indication: PRODUCT USED FOR UNKNOWN INDICATION
     Route: 065
     Dates: start: 20110525, end: 20110613
  36. GRAN [Concomitant]
     Route: 065
     Dates: start: 20120620
  37. SOLU-CORTEF [Concomitant]
     Indication: PRODUCT USED FOR UNKNOWN INDICATION
     Route: 065
  38. SOLU-CORTEF [Concomitant]
     Route: 065
     Dates: start: 20120123, end: 20130123
  39. POLARAMINE [Concomitant]
     Indication: PRODUCT USED FOR UNKNOWN INDICATION
     Route: 065
  40. CRAVIT [Concomitant]
     Indication: PRODUCT USED FOR UNKNOWN INDICATION
     Route: 065
     Dates: end: 20110614
  41. CRAVIT [Concomitant]
     Route: 065
     Dates: start: 20111119, end: 20111127
  42. NASEA [Concomitant]
     Indication: PRODUCT USED FOR UNKNOWN INDICATION
     Route: 065
     Dates: start: 20110517, end: 20110523
  43. NASEA [Concomitant]
     Route: 065
     Dates: start: 20110627, end: 20110701
  44. VALTREX [Concomitant]
     Indication: PRODUCT USED FOR UNKNOWN INDICATION
     Route: 065
     Dates: start: 20110529, end: 20110607
  45. DIFLUCAN [Concomitant]
     Indication: PRODUCT USED FOR UNKNOWN INDICATION
     Route: 065
     Dates: start: 20110529, end: 20110614
  46. CALONAL [Concomitant]
     Indication: PRODUCT USED FOR UNKNOWN INDICATION
     Route: 065
     Dates: start: 20110529, end: 20110606
  47. CALONAL [Concomitant]
     Route: 065
     Dates: start: 20121115, end: 20121204
  48. MEROPEN [Concomitant]
     Indication: PRODUCT USED FOR UNKNOWN INDICATION
     Route: 065
     Dates: start: 20110601, end: 20110606
  49. INOVAN [Concomitant]
     Indication: PRODUCT USED FOR UNKNOWN INDICATION
     Route: 065
     Dates: start: 20111114, end: 20111116
  50. SERENACE [Concomitant]
     Indication: PRODUCT USED FOR UNKNOWN INDICATION
     Route: 065
     Dates: start: 20111114, end: 20111116
  51. GASTER [Concomitant]
     Indication: PRODUCT USED FOR UNKNOWN INDICATION
     Route: 065
     Dates: start: 20111115, end: 20111118
  52. DOBUPUM [Concomitant]
     Indication: PRODUCT USED FOR UNKNOWN INDICATION
     Route: 065
     Dates: start: 20111114, end: 20111127
  53. MORPHINE HYDROCHLORIDE HYDRATE [Concomitant]
     Indication: PRODUCT USED FOR UNKNOWN INDICATION
     Route: 065
     Dates: start: 20111114, end: 20111114
  54. EXJADE [Concomitant]
     Indication: PRODUCT USED FOR UNKNOWN INDICATION
     Route: 065
     Dates: start: 20110601, end: 20110927
  55. ALOXI [Concomitant]
     Indication: PRODUCT USED FOR UNKNOWN INDICATION
     Route: 065
     Dates: start: 20111024, end: 20111024
  56. ALOXI [Concomitant]
     Route: 065
     Dates: start: 20120604, end: 20120605
  57. ALOXI [Concomitant]
     Route: 065
     Dates: start: 20120709, end: 20120713
  58. ALOXI [Concomitant]
     Route: 065
     Dates: start: 20120903, end: 20120903
  59. ALOXI [Concomitant]
     Route: 065
     Dates: start: 20121015, end: 20121015
  60. ALOXI [Concomitant]
     Route: 065
     Dates: start: 20121112, end: 20121112
  61. EMEND [Concomitant]
     Indication: PRODUCT USED FOR UNKNOWN INDICATION
     Route: 065
     Dates: start: 20111026, end: 20111028
  62. EMEND [Concomitant]
     Route: 065
     Dates: start: 20120604, end: 20120607
  63. EMEND [Concomitant]
     Route: 065
     Dates: start: 20120709, end: 20120712
  64. EMEND [Concomitant]
     Route: 065
     Dates: start: 20120903, end: 20120906
  65. EMEND [Concomitant]
     Route: 065
     Dates: start: 20121015, end: 20121018
  66. EMEND [Concomitant]
     Route: 065
     Dates: start: 20121112, end: 20121115
  67. PRIMPERAN [Concomitant]
     Indication: PRODUCT USED FOR UNKNOWN INDICATION
     Route: 065
     Dates: start: 20111114, end: 20111114
  68. PRIMPERAN [Concomitant]
     Route: 065
     Dates: start: 20121019, end: 20121025
  69. PRIMPERAN [Concomitant]
     Route: 065
     Dates: start: 20130123, end: 20130130
  70. HUMULIN R [Concomitant]
     Indication: PRODUCT USED FOR UNKNOWN INDICATION
     Route: 065
     Dates: start: 20111114, end: 20111202
  71. NOVO HEPARIN [Concomitant]
     Indication: PRODUCT USED FOR UNKNOWN INDICATION
     Route: 065
     Dates: start: 20111119, end: 20111127
  72. NOVO HEPARIN [Concomitant]
     Route: 065
     Dates: start: 20121115
  73. TOLVAPTAN [Concomitant]
     Indication: PLEURAL EFFUSION
     Route: 065
  74. INSULIN HUMAN [Concomitant]
     Indication: PRODUCT USED FOR UNKNOWN INDICATION
     Route: 065
     Dates: start: 20111114, end: 20111202
  75. NAUZELIN [Concomitant]
     Indication: PRODUCT USED FOR UNKNOWN INDICATION
     Route: 065
     Dates: start: 20110627, end: 20110705
  76. NAUZELIN [Concomitant]
     Route: 065
     Dates: start: 20120611, end: 20120617
  77. NAUZELIN [Concomitant]
     Route: 065
     Dates: start: 20120709, end: 20120715
  78. NAUZELIN [Concomitant]
     Route: 065
     Dates: start: 20120903, end: 20120913
  79. LAXOBERON [Concomitant]
     Indication: PRODUCT USED FOR UNKNOWN INDICATION
     Route: 065
     Dates: start: 20110623, end: 20110624
  80. PURSENNID [Concomitant]
     Indication: PRODUCT USED FOR UNKNOWN INDICATION
     Route: 065
     Dates: start: 20110623, end: 20110624
  81. RINDERON-V [Concomitant]
     Indication: PRODUCT USED FOR UNKNOWN INDICATION
     Route: 065
     Dates: start: 20110630, end: 20110703
  82. ASPENON [Concomitant]
     Indication: PRODUCT USED FOR UNKNOWN INDICATION
     Route: 065
     Dates: start: 20120118, end: 20121120
  83. ALOSENN [Concomitant]
     Indication: PRODUCT USED FOR UNKNOWN INDICATION
     Route: 065
     Dates: start: 20120314, end: 20130116
  84. FEBURIC [Concomitant]
     Indication: PRODUCT USED FOR UNKNOWN INDICATION
     Route: 065
     Dates: start: 20120530, end: 20120724
  85. FEBURIC [Concomitant]
     Route: 065
  86. DIART [Concomitant]
     Indication: PRODUCT USED FOR UNKNOWN INDICATION
     Route: 065
     Dates: start: 20120919
  87. NU-LOTAN [Concomitant]
     Indication: PRODUCT USED FOR UNKNOWN INDICATION
     Route: 065
     Dates: start: 20121017, end: 20121120
  88. NITROPEN [Concomitant]
     Indication: PRODUCT USED FOR UNKNOWN INDICATION
     Route: 065
     Dates: start: 20121121, end: 20121203
  89. NEXIUM [Concomitant]
     Indication: PRODUCT USED FOR UNKNOWN INDICATION
     Route: 065
     Dates: start: 20121121
  90. ATARAX-P [Concomitant]
     Indication: PRODUCT USED FOR UNKNOWN INDICATION
     Route: 065
     Dates: start: 20130123, end: 20130123

REACTIONS (18)
  - Myelodysplastic syndrome [Fatal]
  - Ventricular tachycardia [Recovered/Resolved]
  - Anaemia [Not Recovered/Not Resolved]
  - Platelet count decreased [Not Recovered/Not Resolved]
  - Neutrophil count decreased [Not Recovered/Not Resolved]
  - White blood cell count decreased [Not Recovered/Not Resolved]
  - Febrile neutropenia [Recovering/Resolving]
  - Atrial fibrillation [Recovering/Resolving]
  - Cardiac failure acute [Recovering/Resolving]
  - Pyrexia [Recovered/Resolved]
  - Constipation [Recovering/Resolving]
  - Nausea [Recovering/Resolving]
  - Nausea [Recovered/Resolved]
  - Injection site reaction [Recovering/Resolving]
  - Nausea [Recovering/Resolving]
  - Injection site reaction [Recovering/Resolving]
  - Nausea [Recovered/Resolved]
  - Blood creatinine increased [Recovering/Resolving]
